FAERS Safety Report 13821613 (Version 2)
Quarter: 2017Q3

REPORT INFORMATION
  Report Type: Spontaneous
  Country: US (occurrence: US)
  Receive Date: 20170801
  Receipt Date: 20170830
  Transmission Date: 20171127
  Serious: Yes (Hospitalization)
  Sender: FDA-Public Use
  Company Number: US-KERYX BIOPHARMACEUTICALS INC.-2017US003083

PATIENT
  Age: 55 Year
  Sex: Female
  Weight: 51.5 kg

DRUGS (9)
  1. LOSARTAN. [Concomitant]
     Active Substance: LOSARTAN
     Dosage: 25 MG, QD
     Route: 048
     Dates: start: 20170524
  2. ULORIC [Concomitant]
     Active Substance: FEBUXOSTAT
     Dosage: 40 MG, QD
     Route: 048
     Dates: start: 20161020
  3. NEPHRO VITE RX [Concomitant]
     Active Substance: ASCORBIC ACID\BIOTIN\CALCIUM PANTOTHENATE\CYANOCOBALAMIN\FOLIC ACID\NIACINAMIDE\PYRIDOXINE HYDROCHLORIDE\RIBOFLAVIN\THIAMINE MONONITRATE
     Dosage: 1 UNK, QD
     Route: 048
     Dates: start: 20150715
  4. EPOGEN [Concomitant]
     Active Substance: ERYTHROPOIETIN
     Dosage: 20000 UNK, TWICE MONTHLY
     Route: 042
     Dates: start: 20170807
  5. ERGOCALCIFEROL. [Concomitant]
     Active Substance: ERGOCALCIFEROL
     Dosage: 5000 UNK, QD
     Route: 048
     Dates: start: 20170419
  6. CLONIDINE. [Concomitant]
     Active Substance: CLONIDINE
     Dosage: 0.1 MG, BID
     Route: 048
     Dates: start: 20161115
  7. AURYXIA [Suspect]
     Active Substance: TETRAFERRIC TRICITRATE DECAHYDRATE
     Indication: BLOOD PHOSPHORUS INCREASED
     Dosage: 6 G (6 TABLETS), DAILY
     Route: 048
     Dates: start: 20170622, end: 20170623
  8. COREG [Concomitant]
     Active Substance: CARVEDILOL
     Dosage: 12.5 MG, BID
     Route: 048
     Dates: start: 20170619
  9. MEGESTROL [Concomitant]
     Active Substance: MEGESTROL
     Dosage: 20 MG, QD
     Route: 048
     Dates: start: 20160420

REACTIONS (1)
  - Dermatitis allergic [Recovered/Resolved]

NARRATIVE: CASE EVENT DATE: 20170622
